FAERS Safety Report 24785117 (Version 1)
Quarter: 2024Q4

REPORT INFORMATION
  Report Type: Spontaneous
  Country: JP (occurrence: JP)
  Receive Date: 20241228
  Receipt Date: 20241228
  Transmission Date: 20250115
  Serious: Yes (Hospitalization, Other)
  Sender: CELLTRION
  Company Number: JP-JPNKAYAKU-2024JPNK045072

PATIENT

DRUGS (8)
  1. BEVACIZUMAB [Suspect]
     Active Substance: BEVACIZUMAB
     Indication: Metastases to peritoneum
     Dosage: 438 MILLIGRAM, BI-WEEKLY
     Route: 042
     Dates: start: 20241004, end: 20241018
  2. GIMERACIL\OTERACIL\TEGAFUR [Suspect]
     Active Substance: GIMERACIL\OTERACIL POTASSIUM\TEGAFUR
     Indication: Metastases to peritoneum
     Dosage: 60 MILLIGRAM, BID
     Route: 048
     Dates: start: 20241004, end: 20241018
  3. FILGRASTIM [Suspect]
     Active Substance: FILGRASTIM
     Indication: Neutrophil count decreased
     Dosage: 75 MICROGRAM, QD
     Route: 058
     Dates: start: 20241022, end: 20241027
  4. MEROPENEM [Concomitant]
     Active Substance: MEROPENEM
     Indication: Sepsis
     Dosage: 1 GRAM, TID
     Route: 042
     Dates: start: 20241022, end: 20241103
  5. HERBALS [Concomitant]
     Active Substance: HERBALS
     Indication: Diarrhoea
     Dosage: 2.5 GRAM, TID
     Route: 048
     Dates: start: 20241012, end: 20241104
  6. VANCOMYCIN [Concomitant]
     Active Substance: VANCOMYCIN
     Indication: Sepsis
     Dosage: 1 GRAM, BID
     Route: 042
     Dates: start: 20241026, end: 20241105
  7. CEFMETAZOLE SODIUM [Concomitant]
     Active Substance: CEFMETAZOLE SODIUM
     Indication: Sepsis
     Dosage: 1 GRAM, QD
     Route: 042
     Dates: start: 20241021, end: 20241021
  8. PIPERACILLIN SODIUM\TAZOBACTAM SODIUM [Concomitant]
     Active Substance: PIPERACILLIN SODIUM\TAZOBACTAM SODIUM
     Indication: Sepsis
     Dosage: 4.5 GRAM, TID
     Route: 042
     Dates: start: 20241104, end: 20241106

REACTIONS (3)
  - Interstitial lung disease [Recovering/Resolving]
  - Underdose [Unknown]
  - Intentional product use issue [Unknown]

NARRATIVE: CASE EVENT DATE: 20241107
